FAERS Safety Report 14228200 (Version 2)
Quarter: 2017Q4

REPORT INFORMATION
  Report Type: Report from Study
  Country: CA (occurrence: CA)
  Receive Date: 20171127
  Receipt Date: 20171221
  Transmission Date: 20180321
  Serious: Yes (Death)
  Sender: FDA-Public Use
  Company Number: CA-HLSUS-2017-CA-001225

PATIENT
  Age: 66 Year
  Sex: Female

DRUGS (14)
  1. TEVA RAMIPRIL 2.5 MG [Concomitant]
  2. APO-GLICLAZIDE MR 30 MG [Concomitant]
  3. APO-CEFUROXIME 500 MG [Concomitant]
  4. LENOLTEC 3 [Concomitant]
  5. CLARITHROMYCN 500 MG [Concomitant]
  6. SANDOZ METFORMIN 500 MG [Concomitant]
  7. SANDOZ RABEPRAZOLE EC  20 MG [Concomitant]
  8. HYDROCHLOROTHIAZIDE 25 MG [Concomitant]
     Active Substance: HYDROCHLOROTHIAZIDE
  9. CLOZARIL [Suspect]
     Active Substance: CLOZAPINE
     Route: 048
     Dates: start: 20070724, end: 20171120
  10. PMS BACLOFEN 10 MG [Concomitant]
  11. CLOPIXOL DEPOT 200 MG/ML [Concomitant]
  12. APO-METOPROLOL 25 MG [Concomitant]
  13. JAMP-ASA 81 MG [Concomitant]
  14. SLOW K [Concomitant]
     Active Substance: POTASSIUM CHLORIDE

REACTIONS (1)
  - Death [Fatal]

NARRATIVE: CASE EVENT DATE: 20171120
